FAERS Safety Report 19904373 (Version 2)
Quarter: 2021Q4

REPORT INFORMATION
  Report Type: Spontaneous
  Country: DE (occurrence: DE)
  Receive Date: 20210930
  Receipt Date: 20211006
  Transmission Date: 20220303
  Serious: Yes (Hospitalization)
  Sender: FDA-Public Use
  Company Number: DE-EISAI MEDICAL RESEARCH-EC-2021-088124

PATIENT
  Age: 41 Year
  Sex: Female
  Weight: 60 kg

DRUGS (6)
  1. LEVETIRACETAM [Suspect]
     Active Substance: LEVETIRACETAM
     Indication: Product used for unknown indication
     Dosage: 1000 MILLIGRAM, BID
     Route: 065
     Dates: end: 20210211
  2. LEVETIRACETAM [Suspect]
     Active Substance: LEVETIRACETAM
     Dosage: 2000 MILLIGRAM, QD
     Route: 065
     Dates: start: 20210212, end: 20210212
  3. FYCOMPA [Suspect]
     Active Substance: PERAMPANEL
     Indication: Product used for unknown indication
     Dosage: 12 MILLIGRAM, QD
     Route: 048
     Dates: end: 20210211
  4. FYCOMPA [Suspect]
     Active Substance: PERAMPANEL
     Dosage: UNK, QD (3 - 4 12 MG TABLETS)
     Route: 048
     Dates: start: 20210212, end: 20210212
  5. LACOSAMIDE [Suspect]
     Active Substance: LACOSAMIDE
     Indication: Product used for unknown indication
     Dosage: 1500 MILLIGRAM
  6. LACOSAMIDE [Suspect]
     Active Substance: LACOSAMIDE
     Dosage: 1000 MILLIGRAM, QD

REACTIONS (7)
  - Dehydration [Unknown]
  - Restlessness [Unknown]
  - Abnormal behaviour [Unknown]
  - Hypotension [Recovered/Resolved]
  - Agitation [Recovering/Resolving]
  - Suicidal ideation [Unknown]
  - Intentional overdose [Recovered/Resolved]

NARRATIVE: CASE EVENT DATE: 20210201
